FAERS Safety Report 7079831-8 (Version None)
Quarter: 2010Q4

REPORT INFORMATION
  Report Type: 
  Country: None (occurrence: None)
  Receive Date: 20101102
  Receipt Date: 20101021
  Transmission Date: 20110411
  Serious: Yes (Other)
  Sender: FDA-Public Use
  Company Number: CA-GENENTECH-301554

PATIENT
  Sex: Male
  Weight: 83 kg

DRUGS (3)
  1. XOLAIR [Suspect]
     Indication: ASTHMA
     Dosage: 375 MG, Q2W
     Route: 058
     Dates: start: 20090123
  2. PREDNISONE [Concomitant]
     Indication: PRODUCT USED FOR UNKNOWN INDICATION
     Dosage: 10 MG, UNK
  3. ANTIBIOTICS (NOT SPECIFIED) [Concomitant]
     Indication: PRODUCT USED FOR UNKNOWN INDICATION

REACTIONS (10)
  - EAR DISCOMFORT [None]
  - INCREASED UPPER AIRWAY SECRETION [None]
  - NASAL CONGESTION [None]
  - OTITIS MEDIA [None]
  - POLYP [None]
  - PULMONARY CONGESTION [None]
  - RESPIRATORY DISORDER [None]
  - RHINORRHOEA [None]
  - SINUS CONGESTION [None]
  - UPPER-AIRWAY COUGH SYNDROME [None]
